FAERS Safety Report 14080265 (Version 1)
Quarter: 2017Q4

REPORT INFORMATION
  Report Type: Spontaneous
  Country: US (occurrence: US)
  Receive Date: 20171012
  Receipt Date: 20171012
  Transmission Date: 20180321
  Serious: No
  Sender: FDA-Public Use
  Company Number: US-CELGENEUS-USA-20171003299

PATIENT
  Sex: Male

DRUGS (1)
  1. REVLIMID [Suspect]
     Active Substance: LENALIDOMIDE
     Indication: MYELODYSPLASTIC SYNDROME
     Dosage: 10 MICROGRAM
     Route: 048
     Dates: start: 201708

REACTIONS (2)
  - Drug intolerance [Unknown]
  - Rash [Unknown]

NARRATIVE: CASE EVENT DATE: 2017
